FAERS Safety Report 7385122-8 (Version None)
Quarter: 2011Q1

REPORT INFORMATION
  Report Type: 
  Country: None (occurrence: None)
  Receive Date: 20110330
  Receipt Date: 20110322
  Transmission Date: 20110831
  Serious: Yes (Hospitalization)
  Sender: FDA-Public Use
  Company Number: AU-AMGEN-AUSSP2011015477

PATIENT
  Age: 99 Year
  Sex: Male

DRUGS (6)
  1. GRANISETRON HCL [Suspect]
     Dosage: UNK
     Dates: start: 20101014
  2. CYCLOPHOSPHAMIDE [Suspect]
     Dosage: UNK UNK, Q2WK
     Dates: start: 20101014
  3. DEXAMETHASONE [Concomitant]
  4. VINCRISTINE [Suspect]
     Dosage: UNK
     Dates: start: 20101014
  5. DOXORUBICIN HCL [Suspect]
     Dosage: 95 MG, Q2WK
     Dates: start: 20101014
  6. NEULASTA [Suspect]
     Indication: PRODUCT USED FOR UNKNOWN INDICATION
     Dosage: 6 MG, UNK
     Route: 058
     Dates: start: 20101015

REACTIONS (1)
  - NEUTROPENIA [None]
